FAERS Safety Report 8289500-4 (Version None)
Quarter: 2012Q2

REPORT INFORMATION
  Report Type: 
  Country: None (occurrence: None)
  Receive Date: 20120417
  Receipt Date: 20120409
  Transmission Date: 20120825
  Serious: Yes (Hospitalization, Other)
  Sender: FDA-Public Use
  Company Number: US-ASTELLAS-2012US003030

PATIENT
  Sex: Male
  Weight: 115 kg

DRUGS (5)
  1. PROGRAF [Suspect]
     Dosage: 1 MG, BID
     Route: 048
     Dates: start: 20120314
  2. NEURONTIN [Concomitant]
     Indication: PRODUCT USED FOR UNKNOWN INDICATION
     Dosage: UNK
     Route: 065
  3. PROGRAF [Suspect]
     Indication: LIVER TRANSPLANT
     Dosage: 1 MG, BID
     Route: 048
     Dates: start: 20060213, end: 20120309
  4. CODEINE SULFATE [Suspect]
     Indication: PAIN
     Dosage: UNK
     Route: 065
     Dates: end: 20120313
  5. OMEPRAZOLE [Concomitant]
     Indication: PRODUCT USED FOR UNKNOWN INDICATION
     Dosage: UNK
     Route: 065

REACTIONS (29)
  - CONFUSIONAL STATE [None]
  - AMMONIA INCREASED [None]
  - LIVER FUNCTION TEST ABNORMAL [None]
  - ABDOMINAL HERNIA [None]
  - HEPATIC ENCEPHALOPATHY [None]
  - RENAL FAILURE CHRONIC [None]
  - DRUG LEVEL ABOVE THERAPEUTIC [None]
  - CHRONIC HEPATITIS [None]
  - ASTHENIA [None]
  - LIVER TRANSPLANT REJECTION [None]
  - PERONEAL NERVE PALSY [None]
  - BACK PAIN [None]
  - TREATMENT NONCOMPLIANCE [None]
  - RENAL FAILURE ACUTE [None]
  - PNEUMONIA [None]
  - DEPRESSION [None]
  - HEPATITIS C [None]
  - TREMOR [None]
  - HEPATIC CIRRHOSIS [None]
  - BRONCHITIS [None]
  - GENERALISED OEDEMA [None]
  - BLOOD CREATININE INCREASED [None]
  - FLUID OVERLOAD [None]
  - NEUROPATHY PERIPHERAL [None]
  - OCULAR ICTERUS [None]
  - BLOOD POTASSIUM INCREASED [None]
  - HEPATIC FIBROSIS [None]
  - ABASIA [None]
  - OEDEMA PERIPHERAL [None]
